FAERS Safety Report 14738133 (Version 5)
Quarter: 2018Q3

REPORT INFORMATION
  Report Type: Spontaneous
  Country: PT (occurrence: PT)
  Receive Date: 20180409
  Receipt Date: 20180710
  Transmission Date: 20181010
  Serious: Yes (Other)
  Sender: FDA-Public Use
  Company Number: PT-BAUSCH-BL-2018-009037

PATIENT
  Age: 52 Year
  Sex: Female

DRUGS (6)
  1. METFORMIN [Suspect]
     Active Substance: METFORMIN HYDROCHLORIDE
     Indication: DIABETES MELLITUS
  2. GLICLAZIDE [Suspect]
     Active Substance: GLICLAZIDE
     Indication: MITOCHONDRIAL DNA MUTATION
  3. LINAGLIPTIN [Suspect]
     Active Substance: LINAGLIPTIN
     Indication: MITOCHONDRIAL DNA MUTATION
     Route: 065
  4. LINAGLIPTIN [Suspect]
     Active Substance: LINAGLIPTIN
     Indication: DIABETES MELLITUS
  5. GLICLAZIDE [Suspect]
     Active Substance: GLICLAZIDE
     Indication: DIABETES MELLITUS
     Route: 065
  6. METFORMIN [Suspect]
     Active Substance: METFORMIN HYDROCHLORIDE
     Indication: MITOCHONDRIAL DNA MUTATION
     Route: 065

REACTIONS (1)
  - Hyperlactacidaemia [Recovered/Resolved]
